FAERS Safety Report 14654916 (Version 1)
Quarter: 2018Q1

REPORT INFORMATION
  Report Type: Spontaneous
  Country: US (occurrence: US)
  Receive Date: 20180319
  Receipt Date: 20180319
  Transmission Date: 20180509
  Serious: No
  Sender: FDA-Public Use
  Company Number: US-GLAXOSMITHKLINE-US2018040448

PATIENT
  Sex: Male

DRUGS (1)
  1. ABREVA [Suspect]
     Active Substance: DOCOSANOL
     Indication: ORAL HERPES
     Dosage: UNK, BID
     Dates: start: 20180307, end: 20180308

REACTIONS (5)
  - Condition aggravated [Unknown]
  - Lip pain [Unknown]
  - Drug hypersensitivity [Unknown]
  - Inappropriate schedule of drug administration [Unknown]
  - Lip swelling [Unknown]

NARRATIVE: CASE EVENT DATE: 20180307
